FAERS Safety Report 7177185-X (Version None)
Quarter: 2010Q4

REPORT INFORMATION
  Report Type: 
  Country: None (occurrence: None)
  Receive Date: 20101220
  Receipt Date: 20101216
  Transmission Date: 20110411
  Serious: Yes (Other)
  Sender: FDA-Public Use
  Company Number: BR-ROCHE-696548

PATIENT
  Sex: Female
  Weight: 94 kg

DRUGS (3)
  1. RIVOTRIL [Suspect]
     Indication: SLEEP DISORDER THERAPY
     Dosage: DRUG TAKEN AT 21:00
     Route: 048
     Dates: start: 19900101
  2. DONAREN [Suspect]
     Indication: SLEEP DISORDER THERAPY
     Dosage: DRUG REPORTED AS DONAREN RETARD, ONCE A DAY AT 21:00, OTHER INDICATION: DEPRESSION, VOICES IN HEAD
     Route: 065
     Dates: start: 20091101, end: 20101101
  3. DONAREN [Suspect]
     Route: 065
     Dates: start: 20101201

REACTIONS (6)
  - DEPRESSION [None]
  - HALLUCINATION, AUDITORY [None]
  - IGA NEPHROPATHY [None]
  - INFLUENZA [None]
  - INSOMNIA [None]
  - RENAL FAILURE [None]
